FAERS Safety Report 8522308-0 (Version None)
Quarter: 2012Q3

REPORT INFORMATION
  Report Type: 
  Country: None (occurrence: None)
  Receive Date: 20120719
  Receipt Date: 20120717
  Transmission Date: 20120928
  Serious: Yes (Death)
  Sender: FDA-Public Use
  Company Number: US-CELGENEUS-163-21880-12071826

PATIENT
  Sex: Male

DRUGS (7)
  1. LANTUS [Concomitant]
     Route: 065
  2. RENVELA [Concomitant]
     Route: 065
  3. ONDANSETRON HYDROCHLORIDE [Concomitant]
     Route: 065
  4. CARVEDILOL [Concomitant]
     Route: 065
  5. DEXAMETHASONE [Concomitant]
     Route: 065
  6. REVLIMID [Suspect]
     Dosage: 5 MILLIGRAM
     Route: 048
     Dates: start: 20111215, end: 20120101
  7. AMIODARONE HCL [Concomitant]
     Route: 065

REACTIONS (1)
  - DEATH [None]
